FAERS Safety Report 15766664 (Version 1)
Quarter: 2018Q4

REPORT INFORMATION
  Report Type: Spontaneous
  Country: DE (occurrence: DE)
  Receive Date: 20181227
  Receipt Date: 20181227
  Transmission Date: 20190205
  Serious: No
  Sender: FDA-Public Use
  Company Number: DE-ROCHE-2233133

PATIENT
  Age: 40 Year
  Sex: Female

DRUGS (1)
  1. OCREVUS [Suspect]
     Active Substance: OCRELIZUMAB
     Indication: MULTIPLE SCLEROSIS
     Route: 042
     Dates: start: 201804

REACTIONS (3)
  - Back pain [Unknown]
  - Bacterial vaginosis [Unknown]
  - Genital odour [Not Recovered/Not Resolved]

NARRATIVE: CASE EVENT DATE: 201805
